FAERS Safety Report 10239716 (Version 1)
Quarter: 2014Q2

REPORT INFORMATION
  Report Type: Spontaneous
  Country: US (occurrence: None)
  Receive Date: 20140612
  Receipt Date: 20140612
  Transmission Date: 20141212
  Serious: Yes (Hospitalization, Other)
  Sender: FDA-Public Use
  Company Number: US-ZYDUS-003701

PATIENT
  Age: 27 Year
  Sex: Female

DRUGS (5)
  1. NORTRIPTYLINE (NORTRIPTYLINE) [Suspect]
  2. IBUPROFEN (IBUPROFEN) [Suspect]
  3. WARFARIN (WARFARIN) [Suspect]
  4. NAPROXEN (NAPROXEN) [Suspect]
  5. ACETAMINOPHEN W/ OXYCODONE [Suspect]

REACTIONS (13)
  - International normalised ratio increased [None]
  - Overdose [None]
  - Suicide attempt [None]
  - Drug interaction [None]
  - Blood pressure increased [None]
  - Heart rate increased [None]
  - Respiratory rate decreased [None]
  - Tachycardia [None]
  - Miosis [None]
  - Sedation [None]
  - Gastrointestinal sounds abnormal [None]
  - Aspartate aminotransferase increased [None]
  - Alanine aminotransferase increased [None]
